FAERS Safety Report 8600030-X (Version None)
Quarter: 2012Q3

REPORT INFORMATION
  Report Type: 
  Country: None (occurrence: None)
  Receive Date: 20120816
  Receipt Date: 20120806
  Transmission Date: 20120928
  Serious: Yes (Other)
  Sender: FDA-Public Use
  Company Number: CHPA2012US017727

PATIENT
  Age: 78 Year
  Sex: Female

DRUGS (4)
  1. ASPIRIN [Concomitant]
     Dosage: UNK, UNK
  2. EXCEDRIN EXTRA STRENGTH CAPLETS [Suspect]
     Dosage: 2 DF, UNK
     Route: 048
     Dates: start: 19650101
  3. EXCEDRIN EXTRA STRENGTH CAPLETS [Suspect]
     Indication: HEADACHE
     Dosage: 3 DF, PRN
     Route: 048
     Dates: start: 19650101
  4. KADIAN [Suspect]
     Indication: SPINAL COLUMN INJURY
     Dosage: 100 MG, UNK

REACTIONS (9)
  - PAIN [None]
  - DRUG INEFFECTIVE [None]
  - INCORRECT DOSE ADMINISTERED [None]
  - HEART RATE IRREGULAR [None]
  - FEELING ABNORMAL [None]
  - FALL [None]
  - SPINAL COLUMN INJURY [None]
  - INSOMNIA [None]
  - INTERVERTEBRAL DISC INJURY [None]
